FAERS Safety Report 10424538 (Version 2)
Quarter: 2014Q3

REPORT INFORMATION
  Report Type: Report from Study
  Country: GB (occurrence: GB)
  Receive Date: 20140902
  Receipt Date: 20140916
  Transmission Date: 20150326
  Serious: Yes (Death, Hospitalization)
  Sender: FDA-Public Use
  Company Number: GB-MUNDIPHARMA DS AND PHARMACOVIGILANCE-GBR-2014-0020388

PATIENT
  Age: 51 Year
  Sex: Female

DRUGS (14)
  1. OXYNORM [Suspect]
     Active Substance: OXYCODONE HYDROCHLORIDE
     Indication: PAIN
     Dosage: UNK
     Dates: start: 20140304
  2. BISACODYL. [Concomitant]
     Active Substance: BISACODYL
     Indication: CONSTIPATION
     Dosage: UNK UNK, PM
     Route: 048
  3. AMOXICILLIN. [Concomitant]
     Active Substance: AMOXICILLIN
     Dosage: UNK
     Dates: start: 20140409, end: 20140502
  4. METOCLOPRAMIDE. [Concomitant]
     Active Substance: METOCLOPRAMIDE
     Indication: NAUSEA
  5. ENZALUTAMIDE [Suspect]
     Active Substance: ENZALUTAMIDE
     Indication: BREAST CANCER
     Dosage: 160 MG, DAILY
     Route: 048
     Dates: start: 20140403, end: 20140514
  6. OMEPRAZOLE. [Concomitant]
     Active Substance: OMEPRAZOLE
     Indication: PROPHYLAXIS
     Dosage: UNK
     Route: 048
     Dates: start: 20131213
  7. PARACETAMOL [Concomitant]
     Active Substance: ACETAMINOPHEN
     Indication: PAIN
     Dosage: UNK
     Route: 048
     Dates: start: 20130414
  8. CORSODYL [Concomitant]
     Active Substance: CHLORHEXIDINE GLUCONATE
  9. OXYCONTIN [Suspect]
     Active Substance: OXYCODONE HYDROCHLORIDE
     Indication: PAIN
     Dosage: UNK
     Dates: start: 20140315
  10. DICLOFENAC [Suspect]
     Active Substance: DICLOFENAC
     Indication: PAIN
     Dosage: UNK
     Dates: start: 20140519, end: 20140519
  11. PREGABALIN. [Concomitant]
     Active Substance: PREGABALIN
     Dosage: 200 MG, BID
     Dates: start: 20140510, end: 20140515
  12. ZOPICLONE [Concomitant]
     Active Substance: ZOPICLONE
     Dosage: UNK
     Dates: end: 20140520
  13. PREGABALIN. [Concomitant]
     Active Substance: PREGABALIN
     Dosage: 300 MG, BID
     Dates: start: 20140515, end: 20140520
  14. OXYGEN. [Concomitant]
     Active Substance: OXYGEN

REACTIONS (10)
  - Toxicity to various agents [Recovered/Resolved with Sequelae]
  - Respiratory depression [Recovered/Resolved with Sequelae]
  - Miosis [Recovered/Resolved with Sequelae]
  - Unresponsive to stimuli [Recovered/Resolved with Sequelae]
  - Dyskinesia [Recovered/Resolved with Sequelae]
  - Malignant neoplasm progression [Fatal]
  - Metastatic pain [Recovered/Resolved with Sequelae]
  - Renal failure acute [Recovered/Resolved]
  - Somnolence [Recovered/Resolved with Sequelae]
  - Lung consolidation [Unknown]

NARRATIVE: CASE EVENT DATE: 20140514
